FAERS Safety Report 8896767 (Version 2)
Quarter: 2012Q4

REPORT INFORMATION
  Report Type: Spontaneous
  Country: JP (occurrence: None)
  Receive Date: 20121101
  Receipt Date: 20121114
  Transmission Date: 20130627
  Serious: Yes (Hospitalization, Other)
  Sender: FDA-Public Use
  Company Number: VAL_00949_2012

PATIENT
  Age: 30 Year
  Sex: Female

DRUGS (2)
  1. METHYLERGOMETRINE [Suspect]
     Indication: HAEMORRHAGE
     Dosage: DF
     Route: 048
  2. OXYTOCIN [Suspect]
     Indication: PRODUCT USED FOR UNKNOWN INDICATION
     Dosage: DF (not otherwise specified)
     Route: 042

REACTIONS (4)
  - Electrocardiogram ST segment elevation [None]
  - Bradycardia [None]
  - Cardiac arrest [None]
  - Caesarean section [None]
